FAERS Safety Report 5269507-1 (Version None)
Quarter: 2007Q1

REPORT INFORMATION
  Report Type: 
  Country: None (occurrence: None)
  Receive Date: 20070320
  Receipt Date: 20070309
  Transmission Date: 20070707
  Serious: Yes (Disabling, Other)
  Sender: FDA-Public Use
  Company Number: US-BRISTOL-MYERS SQUIBB COMPANY-12197463

PATIENT
  Age: 23 Year
  Sex: Male
  Weight: 54 kg

DRUGS (21)
  1. ZERIT [Suspect]
     Indication: ACQUIRED IMMUNODEFICIENCY SYNDROME
     Dosage: 22-OCT-2002 DECREASED TO 60 MG DAILY FROM 80 MG DAILY.
     Route: 048
     Dates: start: 19980114, end: 20040527
  2. VIDEX [Suspect]
     Indication: ACQUIRED IMMUNODEFICIENCY SYNDROME
     Dosage: 150 MG BID 10/30/95, 100 MG BID 12/25/95, 150 MG BID 3/11/98, 200 MG BID 7/12/99-4/20/01
     Route: 048
     Dates: start: 19951030
  3. VIDEX [Suspect]
     Indication: HIV INFECTION
     Dosage: 150 MG BID 10/30/95, 100 MG BID 12/25/95, 150 MG BID 3/11/98, 200 MG BID 7/12/99-4/20/01
     Route: 048
     Dates: start: 19951030
  4. VIDEX EC [Suspect]
     Dates: start: 20010421
  5. STOCRIN CAPS [Suspect]
     Indication: ACQUIRED IMMUNODEFICIENCY SYNDROME
     Route: 048
     Dates: start: 19990329, end: 20020303
  6. REYATAZ [Suspect]
     Route: 048
     Dates: start: 20041008
  7. VIRACEPT [Suspect]
     Indication: ACQUIRED IMMUNODEFICIENCY SYNDROME
     Dosage: INITIATED AT 500 MG THREE TIMES DAILY TO 11-NOV-1997, RESTARTED 17-AUG-1999
     Route: 048
     Dates: start: 19970804, end: 20020303
  8. ZIAGEN [Suspect]
     Indication: ACQUIRED IMMUNODEFICIENCY SYNDROME
     Route: 048
     Dates: start: 19990329
  9. KALETRA [Suspect]
     Indication: ACQUIRED IMMUNODEFICIENCY SYNDROME
     Dosage: DOSAGE FORM=DOSE
     Route: 048
     Dates: start: 20020304
  10. SOMATROPIN [Suspect]
     Indication: WEIGHT DECREASED
     Route: 042
     Dates: start: 20010423
  11. NORVIR [Suspect]
     Indication: HIV INFECTION
     Route: 048
     Dates: start: 20020304
  12. INVIRASE [Suspect]
     Indication: HIV INFECTION
     Route: 048
     Dates: start: 19971111, end: 19980311
  13. LOPEMIN [Concomitant]
     Dosage: THERAPY INTERRUPTED 10/31/99, RESTARTED 4/1/01
     Route: 048
     Dates: start: 19981101
  14. RECOMBINATE [Concomitant]
     Dosage: DOSAGE FORM = UNITS
     Route: 040
     Dates: start: 19971101, end: 20020331
  15. AMPRENAVIR [Concomitant]
     Dates: start: 19990510, end: 19990817
  16. RETROVIR [Concomitant]
     Route: 048
     Dates: start: 19971101, end: 19971111
  17. EPIVIR [Concomitant]
     Dosage: INTERRUPTED 11-NOV-1997, RESTARTED 11-MAR-1998
     Route: 048
     Dates: start: 19971101, end: 19981116
  18. HIVID [Concomitant]
     Route: 048
     Dates: start: 19981116, end: 19990329
  19. PROZEI [Concomitant]
     Route: 048
     Dates: start: 19990510, end: 19990817
  20. LOXONIN [Concomitant]
     Dosage: INTERRUPTED 11-JAN-2002, RESTARTED 01-APR-2002
     Route: 048
     Dates: start: 20011022
  21. CELESTONE [Concomitant]
     Route: 048
     Dates: start: 20041025, end: 20041031

REACTIONS (4)
  - CACHEXIA [None]
  - HYPERLACTACIDAEMIA [None]
  - OSTEONECROSIS [None]
  - PLATELET COUNT DECREASED [None]
